FAERS Safety Report 6634988-5 (Version None)
Quarter: 2010Q1

REPORT INFORMATION
  Report Type: 
  Country: None (occurrence: None)
  Receive Date: 20100312
  Receipt Date: 20100312
  Transmission Date: 20100710
  Serious: No
  Sender: FDA-Public Use
  Company Number: None

PATIENT
  Age: 49 Year
  Sex: Male
  Weight: 81.6475 kg

DRUGS (1)
  1. ZICAM ORAL QUICK DISSOLVE TABLETS [Suspect]
     Indication: NASOPHARYNGITIS
     Dosage: ONE TABLET EVERY 4 HOURS PO
     Route: 048
     Dates: start: 20091224, end: 20100103

REACTIONS (2)
  - ANOSMIA [None]
  - NERVE INJURY [None]
